FAERS Safety Report 22391443 (Version 1)
Quarter: 2023Q2

REPORT INFORMATION
  Report Type: Spontaneous
  Country: DE (occurrence: DE)
  Receive Date: 20230601
  Receipt Date: 20230601
  Transmission Date: 20230721
  Serious: Yes (Death)
  Sender: FDA-Public Use
  Company Number: DE-TEVA-2023-DE-2891956

PATIENT
  Age: 78 Year
  Sex: Male

DRUGS (1)
  1. SUNITINIB [Suspect]
     Active Substance: SUNITINIB
     Indication: Testicular cancer metastatic
     Dosage: 37.5 MILLIGRAM DAILY; 37.5 MG/DAY FOR 3 CONSECUTIVE MONTHS , ONCE A DAY
     Route: 065

REACTIONS (1)
  - Drug ineffective [Fatal]
